FAERS Safety Report 24952584 (Version 1)
Quarter: 2025Q1

REPORT INFORMATION
  Report Type: Report from Study
  Country: US (occurrence: US)
  Receive Date: 20250210
  Receipt Date: 20250210
  Transmission Date: 20250408
  Serious: Yes (Other)
  Sender: ABBVIE
  Company Number: US-ABBVIE-6124339

PATIENT
  Age: 52 Year
  Sex: Female

DRUGS (1)
  1. SKYRIZI [Suspect]
     Active Substance: RISANKIZUMAB-RZAA
     Indication: Crohn^s disease
     Route: 058
     Dates: start: 20240613

REACTIONS (4)
  - Procedural pain [Recovering/Resolving]
  - Intestinal resection [Recovering/Resolving]
  - Erythema [Recovered/Resolved]
  - Gastrooesophageal sphincter insufficiency [Not Recovered/Not Resolved]

NARRATIVE: CASE EVENT DATE: 20241223
